FAERS Safety Report 9842592 (Version 2)
Quarter: 2015Q3

REPORT INFORMATION
  Report Type: Spontaneous
  Country: US (occurrence: US)
  Receive Date: 20140124
  Receipt Date: 20150730
  Transmission Date: 20151125
  Serious: No
  Sender: FDA-Public Use
  Company Number: US-GILEAD-2011-0048440

PATIENT
  Sex: Female

DRUGS (5)
  1. AVAPRO [Concomitant]
     Active Substance: IRBESARTAN
  2. SPIRONOLACTONE. [Concomitant]
     Active Substance: SPIRONOLACTONE
  3. NADOLOL. [Concomitant]
     Active Substance: NADOLOL
  4. LASIX [Concomitant]
     Active Substance: FUROSEMIDE
  5. RANEXA [Suspect]
     Active Substance: RANOLAZINE
     Indication: COLLATERAL CIRCULATION
     Dosage: 500 MG, BID
     Route: 048
     Dates: start: 2011

REACTIONS (3)
  - Hypotension [Unknown]
  - Palpitations [Unknown]
  - Asthenia [Unknown]

NARRATIVE: CASE EVENT DATE: 2011
